FAERS Safety Report 5106617-3 (Version None)
Quarter: 2006Q3

REPORT INFORMATION
  Report Type: 
  Country: None (occurrence: None)
  Receive Date: 20060918
  Receipt Date: 20060912
  Transmission Date: 20061208
  Serious: Yes (Death, Hospitalization)
  Sender: FDA-Public Use
  Company Number: PHBS2006US13923

PATIENT
  Age: 57 Year
  Sex: Male

DRUGS (5)
  1. BACTRIM [Concomitant]
  2. CYCLOSPORINE [Suspect]
     Indication: LUNG TRANSPLANT
     Route: 065
  3. IMURAN [Suspect]
     Indication: LUNG TRANSPLANT
     Route: 065
  4. CORTICOSTEROIDS [Suspect]
     Indication: LUNG TRANSPLANT
  5. VALCYTE [Concomitant]

REACTIONS (19)
  - ARTHRALGIA [None]
  - AZOTAEMIA [None]
  - BLOOD PRESSURE FLUCTUATION [None]
  - BONE MARROW FAILURE [None]
  - CANDIDA SEROLOGY POSITIVE [None]
  - CANDIDIASIS [None]
  - CHILLS [None]
  - DIARRHOEA [None]
  - DYSPNOEA [None]
  - GRAFT VERSUS HOST DISEASE [None]
  - LIVER FUNCTION TEST ABNORMAL [None]
  - MULTI-ORGAN FAILURE [None]
  - MYALGIA [None]
  - NEUTROPENIA [None]
  - PANCYTOPENIA [None]
  - PLATELET COUNT DECREASED [None]
  - PYREXIA [None]
  - RASH PRURITIC [None]
  - SEPSIS [None]
